FAERS Safety Report 4787530-8 (Version None)
Quarter: 2005Q4

REPORT INFORMATION
  Report Type: 
  Country: None (occurrence: None)
  Receive Date: 20051004
  Receipt Date: 20050923
  Transmission Date: 20060501
  Serious: Yes (Hospitalization)
  Sender: FDA-Public Use
  Company Number: US-GILEAD-2005-0008727

PATIENT
  Sex: Female

DRUGS (3)
  1. TRUVADA [Suspect]
     Indication: HIV INFECTION
     Dates: start: 20050912, end: 20050921
  2. SUSTIVA [Concomitant]
     Indication: HIV INFECTION
     Dates: start: 20050912, end: 20050921
  3. IRON [Concomitant]
     Indication: ANAEMIA

REACTIONS (4)
  - CHEST PAIN [None]
  - DIAPHRAGMALGIA [None]
  - HEART RATE INCREASED [None]
  - PALPITATIONS [None]
